FAERS Safety Report 12984525 (Version 2)
Quarter: 2018Q1

REPORT INFORMATION
  Report Type: Spontaneous
  Country: US (occurrence: US)
  Receive Date: 20161129
  Receipt Date: 20180220
  Transmission Date: 20180508
  Serious: Yes (Hospitalization, Disabling)
  Sender: FDA-Public Use
  Company Number: US-ENDO PHARMACEUTICALS INC.-2016-000769

PATIENT
  Age: 69 Year
  Sex: Male
  Weight: 79.37 kg

DRUGS (12)
  1. ANDROGEL [Suspect]
     Active Substance: TESTOSTERONE
     Indication: HYPOGONADISM
     Dosage: 5 MG, DAILY
     Route: 061
     Dates: start: 20100208, end: 20110125
  2. DILTIAZEM. [Concomitant]
     Active Substance: DILTIAZEM
     Indication: CORONARY ARTERY DISEASE
     Dosage: UNK UNKNOWN, UNKNOWN
     Route: 065
     Dates: start: 2010
  3. ANDROGEL [Suspect]
     Active Substance: TESTOSTERONE
     Dosage: 20.25 MG PER PUMP DAILY APPLY 2 PUMPS
     Route: 061
     Dates: start: 20121106, end: 20140408
  4. METOPROLOL. [Concomitant]
     Active Substance: METOPROLOL
     Indication: BLOOD PRESSURE MEASUREMENT
     Dosage: UNK UNKNOWN, UNKNOWN
     Route: 065
     Dates: start: 2010
  5. TESTIM [Suspect]
     Active Substance: TESTOSTERONE
     Indication: HYPOGONADISM
  6. ATORVASTATIN [Concomitant]
     Active Substance: ATORVASTATIN
     Indication: DYSLIPIDAEMIA
     Dosage: UNK UNKNOWN, UNKNOWN
     Route: 065
     Dates: start: 2012
  7. OMEPRAZOLE. [Concomitant]
     Active Substance: OMEPRAZOLE
     Indication: GASTROOESOPHAGEAL REFLUX DISEASE
     Dosage: UNK UNKNOWN, UNKNOWN
     Route: 065
     Dates: start: 2010
  8. TESTOSTERONE. [Suspect]
     Active Substance: TESTOSTERONE
     Indication: ERECTILE DYSFUNCTION
     Dosage: UNK UNKNOWN, DAILY
     Route: 062
     Dates: start: 200807
  9. TESTIM [Suspect]
     Active Substance: TESTOSTERONE
     Indication: ANDROGEN REPLACEMENT THERAPY
     Dosage: UNK UNKNOWN, DAILY
     Route: 062
     Dates: start: 20110301, end: 20121106
  10. TESTOSTERONE CYPIONATE. [Suspect]
     Active Substance: TESTOSTERONE CYPIONATE
     Indication: ERECTILE DYSFUNCTION
     Dosage: UNK UNKNOWN, EVERY THREE WEEKS
     Route: 065
     Dates: start: 20090218, end: 20090924
  11. ROSUVASTATIN. [Concomitant]
     Active Substance: ROSUVASTATIN
     Indication: DYSLIPIDAEMIA
     Dosage: UNK UNKNOWN, UNKNOWN
     Route: 065
     Dates: start: 2010, end: 2012
  12. GEMFIBROZIL. [Concomitant]
     Active Substance: GEMFIBROZIL
     Indication: DYSLIPIDAEMIA
     Dosage: UNK UNKNOWN, UNKNOWN
     Route: 065
     Dates: start: 2010

REACTIONS (10)
  - Deep vein thrombosis [Unknown]
  - Anxiety [Not Recovered/Not Resolved]
  - Fear [Not Recovered/Not Resolved]
  - Anhedonia [Not Recovered/Not Resolved]
  - Pain [Not Recovered/Not Resolved]
  - Deep vein thrombosis [Unknown]
  - Loss of personal independence in daily activities [Not Recovered/Not Resolved]
  - Asthenia [Not Recovered/Not Resolved]
  - Hypotonia [Not Recovered/Not Resolved]
  - Gastroenteritis [Recovering/Resolving]

NARRATIVE: CASE EVENT DATE: 2012
